FAERS Safety Report 7700576-2 (Version None)
Quarter: 2011Q3

REPORT INFORMATION
  Report Type: 
  Country: None (occurrence: None)
  Receive Date: 20110817
  Receipt Date: 20110802
  Transmission Date: 20111222
  Serious: Yes (Hospitalization)
  Sender: FDA-Public Use
  Company Number: 2010-172

PATIENT
  Age: 48 Year
  Sex: Male

DRUGS (4)
  1. PRIALT [Suspect]
     Indication: PAIN
     Dosage: 0.042 - 0.083 UG, ONCE/HOUR, INTRATHECAL
     Route: 037
     Dates: start: 20100425
  2. ARCOXIA [Concomitant]
  3. MORPHINE SULFATE [Concomitant]
  4. SPASMEX (TROSPIUM CHLORIDE) [Concomitant]

REACTIONS (8)
  - ABDOMINAL PAIN [None]
  - RESTLESS LEGS SYNDROME [None]
  - SOMNOLENCE [None]
  - ASPARTATE AMINOTRANSFERASE INCREASED [None]
  - FORMICATION [None]
  - GAMMA-GLUTAMYLTRANSFERASE INCREASED [None]
  - ALANINE AMINOTRANSFERASE INCREASED [None]
  - VOMITING [None]
